FAERS Safety Report 21164555 (Version 2)
Quarter: 2022Q3

REPORT INFORMATION
  Report Type: Spontaneous
  Country: None (occurrence: US)
  Receive Date: 20220803
  Receipt Date: 20220815
  Transmission Date: 20221027
  Serious: Yes (Other)
  Sender: FDA-Public Use
  Company Number: US-Vero Biotech-2131477

PATIENT
  Age: 58 Year
  Sex: Male

DRUGS (2)
  1. GENOSYL [Suspect]
     Active Substance: NITRIC OXIDE
     Indication: Right ventricular failure
     Route: 055
     Dates: start: 20220721
  2. GENOSYL [Suspect]
     Active Substance: NITRIC OXIDE

REACTIONS (4)
  - Right ventricular failure [Recovered/Resolved]
  - Underdose [None]
  - Overdose [None]
  - Cardiogenic shock [Unknown]

NARRATIVE: CASE EVENT DATE: 20220723
